FAERS Safety Report 22138629 (Version 1)
Quarter: 2023Q1

REPORT INFORMATION
  Report Type: Spontaneous
  Country: AU (occurrence: AU)
  Receive Date: 20230326
  Receipt Date: 20230326
  Transmission Date: 20230418
  Serious: Yes (Other)
  Sender: FDA-Public Use
  Company Number: AU-AMGEN-AUSSP2023052473

PATIENT
  Age: 62 Year
  Sex: Male

DRUGS (1)
  1. REPATHA [Suspect]
     Active Substance: EVOLOCUMAB
     Indication: Blood cholesterol increased
     Dosage: 140 1XO, Q2WK (6.5 MONTHS)
     Route: 065

REACTIONS (6)
  - Myocardial infarction [Unknown]
  - Catheterisation cardiac [Unknown]
  - Asthenia [Unknown]
  - Disorientation [Unknown]
  - Dizziness [Unknown]
  - Influenza like illness [Unknown]
